FAERS Safety Report 10731768 (Version 4)
Quarter: 2015Q1

REPORT INFORMATION
  Report Type: Spontaneous
  Country: JP (occurrence: JP)
  Receive Date: 20150123
  Receipt Date: 20150308
  Transmission Date: 20150721
  Serious: Yes (Hospitalization)
  Sender: FDA-Public Use
  Company Number: JP-009507513-1501JPN008696

PATIENT
  Age: 15 Year
  Sex: Female

DRUGS (4)
  1. CARBAMAZEPINE. [Suspect]
     Active Substance: CARBAMAZEPINE
     Indication: BORDERLINE PERSONALITY DISORDER
     Dosage: ABOUT 100 TABLETS (AROUND 20,000 MG)
     Route: 048
  2. REFLEX [Suspect]
     Active Substance: MIRTAZAPINE
     Indication: BORDERLINE PERSONALITY DISORDER
     Dosage: ABOUT 50 TABLETS (AROUND 750MG)
     Route: 048
  3. CARBAMAZEPINE. [Suspect]
     Active Substance: CARBAMAZEPINE
     Dosage: 400 MG/DAY
     Route: 048
  4. REFLEX [Suspect]
     Active Substance: MIRTAZAPINE
     Dosage: 15 MG/DAY
     Route: 048

REACTIONS (2)
  - Off label use [Unknown]
  - Intentional overdose [Unknown]
